FAERS Safety Report 7079264-4 (Version None)
Quarter: 2010Q4

REPORT INFORMATION
  Report Type: 
  Country: None (occurrence: None)
  Receive Date: 20101102
  Receipt Date: 20101029
  Transmission Date: 20110411
  Serious: Yes (Hospitalization)
  Sender: FDA-Public Use
  Company Number: FR-ROCHE-737577

PATIENT

DRUGS (8)
  1. RIVOTRIL [Suspect]
     Route: 065
     Dates: end: 20100914
  2. MEPRONIZINE [Interacting]
     Route: 065
     Dates: end: 20100914
  3. TRIMEPRAZINE TAB [Interacting]
     Route: 065
     Dates: end: 20100914
  4. RISPERDAL [Interacting]
     Route: 065
     Dates: end: 20100914
  5. PARIET [Concomitant]
  6. KARDEGIC [Concomitant]
  7. PLAVIX [Concomitant]
  8. AVLOCARDYL [Concomitant]

REACTIONS (3)
  - DEPRESSED LEVEL OF CONSCIOUSNESS [None]
  - DRUG INTERACTION [None]
  - MUSCULAR WEAKNESS [None]
